FAERS Safety Report 14480778 (Version 1)
Quarter: 2018Q1

REPORT INFORMATION
  Report Type: Spontaneous
  Country: PL (occurrence: PL)
  Receive Date: 20180202
  Receipt Date: 20180202
  Transmission Date: 20180509
  Serious: Yes (Other)
  Sender: FDA-Public Use
  Company Number: PL-TEVA-2018-PL-851713

PATIENT
  Age: 53 Year
  Sex: Female

DRUGS (4)
  1. DOXEPIN TEVA [Suspect]
     Active Substance: DOXEPIN
     Indication: DEPRESSION
     Dosage: 50 MILLIGRAM DAILY; AT THE MORNING AND EVENING
     Route: 065
     Dates: start: 201712, end: 201801
  2. DOXEPIN TEVA [Suspect]
     Active Substance: DOXEPIN
     Indication: ANXIETY DISORDER
     Route: 065
     Dates: start: 201711, end: 201711
  3. SULPIRYD TEVA [Suspect]
     Active Substance: SULPIRIDE
     Route: 065
     Dates: start: 2010
  4. DOXEPIN TEVA [Suspect]
     Active Substance: DOXEPIN
     Dosage: 25 MILLIGRAM DAILY;
     Route: 065
     Dates: start: 201801

REACTIONS (4)
  - Tremor [Not Recovered/Not Resolved]
  - Erythema [Recovered/Resolved]
  - Drug ineffective [Unknown]
  - Dyspnoea [Not Recovered/Not Resolved]

NARRATIVE: CASE EVENT DATE: 201710
